FAERS Safety Report 6095707-7 (Version None)
Quarter: 2009Q1

REPORT INFORMATION
  Report Type: 
  Country: None (occurrence: None)
  Receive Date: 20090227
  Receipt Date: 20080528
  Transmission Date: 20090719
  Serious: Yes (Hospitalization)
  Sender: FDA-Public Use
  Company Number: A0729952A

PATIENT
  Age: 23 Year
  Sex: Female

DRUGS (3)
  1. LAMICTAL [Suspect]
     Indication: BIPOLAR DISORDER
     Dosage: 50MG PER DAY
     Route: 048
     Dates: start: 20080511, end: 20080525
  2. ADVAIR HFA [Concomitant]
  3. ALBUTEROL [Concomitant]

REACTIONS (4)
  - MALAISE [None]
  - PYREXIA [None]
  - RASH [None]
  - RASH MACULAR [None]
